FAERS Safety Report 12447031 (Version 1)
Quarter: 2016Q2

REPORT INFORMATION
  Report Type: Spontaneous
  Country: US (occurrence: US)
  Receive Date: 20160608
  Receipt Date: 20160608
  Transmission Date: 20160815
  Serious: Yes (Other)
  Sender: FDA-Public Use
  Company Number: US-BAYER-2016-108639

PATIENT
  Age: 68 Year
  Sex: Female

DRUGS (4)
  1. BAYER GENUINE ASPIRIN [Suspect]
     Active Substance: ASPIRIN
  2. LIDOCAIN [Concomitant]
     Active Substance: LIDOCAINE
  3. ADVIL [Concomitant]
     Active Substance: IBUPROFEN
     Dosage: UNK UNK, UNK
  4. IBUPROFEN. [Concomitant]
     Active Substance: IBUPROFEN
     Dosage: UNK, UNK

REACTIONS (2)
  - Transfusion [None]
  - Haemorrhage [None]
